FAERS Safety Report 4850557-1 (Version None)
Quarter: 2005Q4

REPORT INFORMATION
  Report Type: 
  Country: None (occurrence: None)
  Receive Date: 20051212
  Receipt Date: 20051111
  Transmission Date: 20060501
  Serious: Yes (Death)
  Sender: FDA-Public Use
  Company Number: US-BOEHRINGER INGELHEIM PHARMACEUTICALS, INC.-2005-BP-20178BP

PATIENT
  Sex: Female

DRUGS (2)
  1. ATROVENT INHALATION AEROSOL HFA [Suspect]
     Indication: CHRONIC OBSTRUCTIVE PULMONARY DISEASE
     Route: 055
     Dates: start: 20051110
  2. ATROVENT INHALATION AEROSOL HFA [Suspect]
     Indication: EMPHYSEMA

REACTIONS (2)
  - CORONARY ARTERY DISEASE [None]
  - ORAL DISCOMFORT [None]
